FAERS Safety Report 4436202-8 (Version None)
Quarter: 2004Q3

REPORT INFORMATION
  Report Type: 
  Country: None (occurrence: None)
  Receive Date: 20040830
  Receipt Date: 20040514
  Transmission Date: 20050211
  Serious: No
  Sender: FDA-Public Use
  Company Number: US-BRISTOL-MYERS SQUIBB COMPANY-12589487

PATIENT
  Age: 71 Year
  Sex: Male

DRUGS (11)
  1. ERBITUX [Suspect]
     Indication: COLON CANCER
     Dosage: 1ST INFUSION 21-APR-04 (750MG), 2ND INFUSION 27-APR-04 (750MG), 3RD INFUSION 11-MAY-04 (472MG)
     Route: 042
     Dates: start: 20040427, end: 20040427
  2. FLUOROURACIL [Concomitant]
     Dosage: BOLUS OF 750MG + ON CONTINUOUS DRIP ON 27-APR-04, 760MG ON 11-MAY-04
     Route: 042
     Dates: start: 20040427, end: 20040427
  3. LEUCOVORIN [Concomitant]
     Dosage: 380 MG ON 27-APR-04, 388 MG ON 11-MAY-04
     Route: 042
     Dates: start: 20040427, end: 20040427
  4. PARAPLATIN [Concomitant]
     Dosage: 140 MG ON 27-APR-04, 160 MG ON 11-MAY-04
     Route: 042
     Dates: start: 20040427, end: 20040427
  5. BENADRYL [Concomitant]
     Indication: PREMEDICATION
     Route: 042
     Dates: start: 20040427, end: 20040427
  6. TYLENOL [Concomitant]
     Indication: PREMEDICATION
     Route: 048
     Dates: start: 20040427, end: 20040427
  7. KYTRIL [Concomitant]
     Indication: PREMEDICATION
     Route: 042
     Dates: start: 20040427, end: 20040427
  8. DECADRON [Concomitant]
     Indication: PREMEDICATION
     Dosage: 10 MG PRE-MED FOR 27-APR-04 INFUSION, 20 MG PRE-MED FOR 11-MAY-04 INFUSION
     Route: 042
     Dates: start: 20040427, end: 20040427
  9. COUMADIN [Concomitant]
     Route: 048
  10. PLAVIX [Concomitant]
     Route: 048
  11. VICODIN [Concomitant]
     Indication: PAIN
     Dosage: DOSAGE FORM = 7.5 MG/750 MG
     Route: 048

REACTIONS (3)
  - MEDICATION ERROR [None]
  - NO ADVERSE EFFECT [None]
  - OVERDOSE [None]
